FAERS Safety Report 9492440 (Version 2)
Quarter: 2013Q4

REPORT INFORMATION
  Report Type: Report from Study
  Country: US (occurrence: US)
  Receive Date: 20130830
  Receipt Date: 20131014
  Transmission Date: 20140711
  Serious: Yes (Other)
  Sender: FDA-Public Use
  Company Number: US-PFIZER INC-2013248260

PATIENT
  Age: 54 Year
  Sex: Female

DRUGS (3)
  1. SOLU-MEDROL [Suspect]
     Dosage: UNK
  2. FENTANYL [Suspect]
     Dosage: UNK
  3. REBIF [Suspect]
     Dosage: 44 UG, (44 MCG THREE TIMES PER WEEK )
     Route: 058
     Dates: start: 20031017

REACTIONS (9)
  - Anaphylactic reaction [Unknown]
  - Anaphylactic reaction [Unknown]
  - Anaphylactic reaction [Unknown]
  - Multiple sclerosis relapse [Unknown]
  - Hypertension [Recovering/Resolving]
  - Contusion [Unknown]
  - Soft tissue injury [Unknown]
  - Limb injury [Unknown]
  - Injection site pain [Unknown]
